FAERS Safety Report 9891830 (Version 1)
Quarter: 2014Q1

REPORT INFORMATION
  Report Type: Spontaneous
  Country: US (occurrence: US)
  Receive Date: 20140212
  Receipt Date: 20140212
  Transmission Date: 20141002
  Serious: Yes (Life-Threatening, Hospitalization)
  Sender: FDA-Public Use
  Company Number: US-BRISTOL-MYERS SQUIBB COMPANY-20132676

PATIENT
  Age: 2 Year
  Sex: Male

DRUGS (1)
  1. ABILIFY TABS [Suspect]

REACTIONS (1)
  - Accidental exposure to product by child [Unknown]
